FAERS Safety Report 8192851-5 (Version None)
Quarter: 2012Q1

REPORT INFORMATION
  Report Type: 
  Country: None (occurrence: None)
  Receive Date: 20120308
  Receipt Date: 20120227
  Transmission Date: 20120608
  Serious: Yes (Hospitalization)
  Sender: FDA-Public Use
  Company Number: DK-JNJFOC-20110400829

PATIENT
  Sex: Female

DRUGS (4)
  1. REMICADE [Suspect]
     Indication: RHEUMATOID ARTHRITIS
     Route: 042
     Dates: start: 20000914
  2. REMICADE [Suspect]
     Route: 042
     Dates: start: 20110214
  3. REMICADE [Suspect]
     Route: 042
  4. METHOTREXATE [Concomitant]
     Dates: start: 20000101

REACTIONS (1)
  - UTERINE CANCER [None]
